FAERS Safety Report 17549687 (Version 1)
Quarter: 2020Q3

REPORT INFORMATION
  Report Type: Spontaneous
  Country: US (occurrence: US)
  Receive Date: 20200317
  Receipt Date: 20200317
  Transmission Date: 20201105
  Serious: Yes (Other)
  Sender: FDA-Public Use
  Company Number: US-REGENERON PHARMACEUTICALS, INC.-2020-24256

PATIENT

DRUGS (4)
  1. BROLUCIZUMAB. [Suspect]
     Active Substance: BROLUCIZUMAB
     Dosage: UNK
     Dates: start: 20200116, end: 20200116
  2. EYLEA [Suspect]
     Active Substance: AFLIBERCEPT
     Dosage: UNK
     Dates: start: 202002, end: 202002
  3. EYLEA [Suspect]
     Active Substance: AFLIBERCEPT
     Indication: PRODUCT USED FOR UNKNOWN INDICATION
     Dosage: UNK
  4. BROLUCIZUMAB. [Suspect]
     Active Substance: BROLUCIZUMAB
     Indication: PRODUCT USED FOR UNKNOWN INDICATION
     Dosage: UNK

REACTIONS (2)
  - Retinitis [Unknown]
  - Uveitis [Unknown]
